FAERS Safety Report 24804449 (Version 1)
Quarter: 2025Q1

REPORT INFORMATION
  Report Type: Spontaneous
  Country: US (occurrence: None)
  Receive Date: 20250102
  Receipt Date: 20250102
  Transmission Date: 20250408
  Serious: Yes (Hospitalization)
  Sender: FDA-CTU
  Company Number: None

PATIENT
  Sex: Female

DRUGS (1)
  1. XEOMIN [Suspect]
     Active Substance: INCOBOTULINUMTOXINA
     Indication: Hemiplegia
     Route: 030
     Dates: start: 202407

REACTIONS (7)
  - Injection site infection [None]
  - Sepsis [None]
  - Cerebrovascular accident [None]
  - Osteogenesis imperfecta [None]
  - Lower limb fracture [None]
  - Brain oedema [None]
  - Circumstance or information capable of leading to medication error [None]
